FAERS Safety Report 4737616-9 (Version None)
Quarter: 2005Q3

REPORT INFORMATION
  Report Type: 
  Country: None (occurrence: None)
  Receive Date: 20050809
  Receipt Date: 20050524
  Transmission Date: 20060218
  Serious: No
  Sender: FDA-Public Use
  Company Number: US-GLAXOSMITHKLINE-A0559863A

PATIENT
  Age: 26 Year
  Sex: Female

DRUGS (1)
  1. COMMIT [Suspect]
     Dates: start: 20050523, end: 20050523

REACTIONS (3)
  - NAUSEA [None]
  - ORAL DISCOMFORT [None]
  - VOMITING [None]
